FAERS Safety Report 24728911 (Version 1)
Quarter: 2024Q4

REPORT INFORMATION
  Report Type: Report from Study
  Country: IN (occurrence: IN)
  Receive Date: 20241212
  Receipt Date: 20241212
  Transmission Date: 20250115
  Serious: Yes (Hospitalization, Other)
  Sender: CIPLA
  Company Number: IN-CIPLA LTD.-2024IN14493

PATIENT

DRUGS (4)
  1. SPIRONOLACTONE\TORSEMIDE [Suspect]
     Active Substance: SPIRONOLACTONE\TORSEMIDE
     Indication: Urine abnormality
     Dosage: DOSE USED-1, FREQUENCY-1, STRENGTH:10 (UNSPECIFIED UNITS)
     Route: 048
  2. WARFARIN SODIUM [Suspect]
     Active Substance: WARFARIN SODIUM
     Indication: Anticoagulant therapy
     Dosage: DOSE USED-1, FREQUENCY-1, STRENGTH:10 (UNSPECIFIED UNITS)
     Route: 048
  3. METPURE XL [Concomitant]
     Indication: Product used for unknown indication
     Dosage: 12.5 (UNITS UNSPECIFIED)
     Route: 065
  4. ASPIRIN\ATORVASTATIN [Concomitant]
     Active Substance: ASPIRIN\ATORVASTATIN
     Indication: Product used for unknown indication
     Dosage: 75 (UNITS UNSPECIFIED)
     Route: 065

REACTIONS (3)
  - Acidosis [Not Recovered/Not Resolved]
  - Peripheral swelling [Not Recovered/Not Resolved]
  - Dyspnoea exertional [Not Recovered/Not Resolved]

NARRATIVE: CASE EVENT DATE: 20240301
